FAERS Safety Report 9137376 (Version 2)
Quarter: 2013Q1

REPORT INFORMATION
  Report Type: Spontaneous
  Country: US (occurrence: US)
  Receive Date: 20130304
  Receipt Date: 20130321
  Transmission Date: 20140127
  Serious: No
  Sender: FDA-Public Use
  Company Number: US-TEVA-386857USA

PATIENT
  Sex: Male
  Weight: 88.53 kg

DRUGS (9)
  1. ACTIQ [Suspect]
     Indication: PAIN
     Route: 048
  2. PLAVIX [Concomitant]
  3. LISINOPRIL [Concomitant]
  4. COLCHICINE [Concomitant]
  5. METOPROLOL [Concomitant]
  6. ZOCOR [Concomitant]
  7. MULTIVITAMIN [Concomitant]
  8. ASA [Concomitant]
  9. FENTANYL [Concomitant]

REACTIONS (2)
  - Tooth disorder [Unknown]
  - Dental caries [Unknown]
